FAERS Safety Report 7658228-3 (Version None)
Quarter: 2011Q3

REPORT INFORMATION
  Report Type: 
  Country: None (occurrence: None)
  Receive Date: 20110805
  Receipt Date: 20110726
  Transmission Date: 20111222
  Serious: Yes (Death)
  Sender: FDA-Public Use
  Company Number: JP-JNJFOC-20110801452

PATIENT

DRUGS (9)
  1. ORTHOCLONE OKT3 [Suspect]
     Indication: PROPHYLAXIS AGAINST TRANSPLANT REJECTION
     Dosage: 5.0 MG/BODY SURFACE AREA/DAY
     Route: 065
  2. TACROLIMUS [Concomitant]
     Indication: IMMUNOSUPPRESSANT DRUG THERAPY
     Dosage: 8-15 NG/ML
     Route: 065
  3. HYDROCORTISONE [Concomitant]
     Indication: PROPHYLAXIS
     Route: 065
  4. PREDNISOLONE [Concomitant]
     Dosage: AT 4 WEEKS AFTER LDLT
     Route: 048
  5. METHYLPREDNISOLONE [Concomitant]
     Indication: IMMUNOSUPPRESSANT DRUG THERAPY
     Dosage: FOR 3 DAYS
     Route: 042
  6. METHYLPREDNISOLONE [Concomitant]
     Dosage: FOR 3 DAYS
     Route: 042
  7. CHLORPHENIRAMINE MALEATE [Concomitant]
     Indication: PROPHYLAXIS
     Route: 065
  8. METHYLPREDNISOLONE [Concomitant]
     Dosage: POD 1 TO POD 3
     Route: 042
  9. PREDNISOLONE [Concomitant]
     Indication: IMMUNOSUPPRESSANT DRUG THERAPY
     Dosage: ON POD 8
     Route: 048

REACTIONS (2)
  - LIVER TRANSPLANT REJECTION [None]
  - LIVER GRAFT LOSS [None]
